FAERS Safety Report 23134720 (Version 1)
Quarter: 2023Q4

REPORT INFORMATION
  Report Type: Spontaneous
  Country: US (occurrence: None)
  Receive Date: 20231031
  Receipt Date: 20231031
  Transmission Date: 20240110
  Serious: Yes (Other)
  Sender: FDA-Public Use
  Company Number: None

PATIENT
  Age: 51 Year
  Sex: Female
  Weight: 55.35 kg

DRUGS (13)
  1. LEVOFLOXACIN [Suspect]
     Active Substance: LEVOFLOXACIN
     Indication: Bacterial infection
     Dosage: OTHER QUANTITY : 7 TABLET(S);?FREQUENCY : DAILY;?
     Route: 048
     Dates: start: 20130812, end: 20130818
  2. Yuvafem vaginal insert [Concomitant]
  3. PROGESTERONE [Concomitant]
     Active Substance: PROGESTERONE
  4. estrogen/oral [Concomitant]
  5. pantrapozle [Concomitant]
  6. ALLEGRA [Concomitant]
     Active Substance: FEXOFENADINE HYDROCHLORIDE
  7. FLONASE [Concomitant]
     Active Substance: FLUTICASONE PROPIONATE
  8. Mulit-vitamin [Concomitant]
  9. oil of oregano [Concomitant]
  10. OLEA EUROPAEA LEAF [Concomitant]
     Active Substance: OLEA EUROPAEA LEAF
  11. digestzymes [Concomitant]
  12. floramyces [Concomitant]
  13. lactomedi vaginal insert [Concomitant]

REACTIONS (4)
  - Urinary tract infection [None]
  - Arthralgia [None]
  - Fungal infection [None]
  - Suicidal ideation [None]

NARRATIVE: CASE EVENT DATE: 20130913
